FAERS Safety Report 23468603 (Version 1)
Quarter: 2024Q1

REPORT INFORMATION
  Report Type: Spontaneous
  Country: US (occurrence: None)
  Receive Date: 20240201
  Receipt Date: 20240201
  Transmission Date: 20240409
  Serious: Yes (Hospitalization, Disabling)
  Sender: FDA-Public Use
  Company Number: None

PATIENT
  Age: 44 Year
  Sex: Female
  Weight: 72.45 kg

DRUGS (15)
  1. CIPROFLOXACIN [Suspect]
     Active Substance: CIPROFLOXACIN
     Indication: Cystitis
     Dosage: OTHER QUANTITY : 1 CAPSULE(S);?FREQUENCY : TWICE A DAY;?
     Route: 048
     Dates: start: 20240102, end: 20240105
  2. CIPROFLOXACIN [Suspect]
     Active Substance: CIPROFLOXACIN
     Indication: Therapy cessation
  3. CIPROFLOXACIN [Suspect]
     Active Substance: CIPROFLOXACIN
     Indication: Condition aggravated
  4. GLUTATHIONE [Concomitant]
     Active Substance: GLUTATHIONE
  5. Vitamin C [Concomitant]
  6. VITAMIN E [Concomitant]
     Active Substance: .ALPHA.-TOCOPHEROL
  7. ZINC [Concomitant]
     Active Substance: PYRITHIONE ZINC\ZINC\ZINC CHLORIDE
  8. CALCIUM [Concomitant]
     Active Substance: CALCIUM
  9. ACTIVATED CHARCOAL [Concomitant]
     Active Substance: ACTIVATED CHARCOAL
  10. MAGNESIUM [Concomitant]
     Active Substance: MAGNESIUM
  11. QUERCETIN [Concomitant]
     Active Substance: QUERCETIN
  12. NAC [Concomitant]
  13. L threonate [Concomitant]
  14. PQQ [Concomitant]
  15. COENZYME Q10 [Concomitant]
     Active Substance: DIETARY SUPPLEMENT\UBIDECARENONE

REACTIONS (16)
  - Neuropathy peripheral [None]
  - Anxiety [None]
  - Myalgia [None]
  - Tendon pain [None]
  - Bone pain [None]
  - Tachycardia [None]
  - Hypertension [None]
  - Burning sensation [None]
  - Paraesthesia [None]
  - Abdominal pain upper [None]
  - Throat tightness [None]
  - Dysphagia [None]
  - Electrocardiogram abnormal [None]
  - Feeding disorder [None]
  - Weight decreased [None]
  - Condition aggravated [None]

NARRATIVE: CASE EVENT DATE: 20240105
